FAERS Safety Report 7244079-0 (Version None)
Quarter: 2011Q1

REPORT INFORMATION
  Report Type: 
  Country: None (occurrence: None)
  Receive Date: 20110119
  Receipt Date: 20110119
  Transmission Date: 20110831
  Serious: Yes (Life-Threatening, Hospitalization)
  Sender: FDA-Public Use
  Company Number: None

PATIENT
  Age: 57 Year
  Sex: Male
  Weight: 71.2147 kg

DRUGS (1)
  1. INVEGA [Suspect]
     Indication: SCHIZOPHRENIA
     Dates: start: 20100110, end: 20101212

REACTIONS (6)
  - MOVEMENT DISORDER [None]
  - ABASIA [None]
  - URINARY TRACT INFECTION [None]
  - ACTIVITIES OF DAILY LIVING IMPAIRED [None]
  - SPEECH DISORDER [None]
  - NEUROLEPTIC MALIGNANT SYNDROME [None]
